FAERS Safety Report 19196334 (Version 1)
Quarter: 2021Q2

REPORT INFORMATION
  Report Type: Spontaneous
  Country: FR (occurrence: FR)
  Receive Date: 20210429
  Receipt Date: 20210429
  Transmission Date: 20210717
  Serious: Yes (Hospitalization)
  Sender: FDA-Public Use
  Company Number: NVSC2021FR087608

PATIENT
  Age: 28 Year
  Sex: Male

DRUGS (3)
  1. AZITHROMYCIN ANHYDROUS. [Suspect]
     Active Substance: AZITHROMYCIN ANHYDROUS
     Indication: COVID-19
     Dosage: 1 DF, QD
     Route: 048
     Dates: start: 20210316, end: 20210323
  2. RUBOZINC [Suspect]
     Active Substance: ZINC GLUCONATE
     Indication: COVID-19
     Dosage: 1 DF, QD
     Route: 048
     Dates: start: 20210316, end: 20210323
  3. PLAQUENIL [Suspect]
     Active Substance: HYDROXYCHLOROQUINE SULFATE
     Indication: COVID-19
     Dosage: 600 MG, QD
     Route: 048
     Dates: start: 20210316, end: 20210323

REACTIONS (2)
  - Psychiatric decompensation [Recovered/Resolved]
  - Drug ineffective [Recovered/Resolved]

NARRATIVE: CASE EVENT DATE: 20210323
